FAERS Safety Report 8027812-X (Version None)
Quarter: 2012Q1

REPORT INFORMATION
  Report Type: 
  Country: None (occurrence: None)
  Receive Date: 20120106
  Receipt Date: 20120103
  Transmission Date: 20120608
  Serious: Yes (Death, Other)
  Sender: FDA-Public Use
  Company Number: FR-SANOFI-AVENTIS-2012SA000289

PATIENT
  Sex: Female

DRUGS (6)
  1. DOXORUBICIN HCL [Suspect]
     Dosage: 90 MINUTE INFUSION, IN 21 DAY CYCLE
     Route: 042
  2. DOCETAXEL [Suspect]
     Dosage: 1 HOUR INTRAVENOUS INFUSION ON DAY 1 OF A 21-DAY CYCLE
     Route: 042
  3. CORTICOSTEROIDS [Concomitant]
     Dosage: TO PREVENT DOCETAXEL RELATED HYPERSENSITIVITY AND FLUID RETENTION
  4. EPIRUBICIN [Concomitant]
  5. ANTIEMETICS AND ANTINAUSEANTS [Concomitant]
     Dosage: BEFORE EACH CYCLE
  6. CORTICOSTEROIDS [Concomitant]
     Indication: PREMEDICATION
     Dosage: TO PREVENT DOCETAXEL RELATED HYPERSENSITIVITY AND FLUID RETENTION

REACTIONS (2)
  - CARDIAC FAILURE CONGESTIVE [None]
  - CARDIAC DISORDER [None]
